FAERS Safety Report 10156715 (Version 1)
Quarter: 2014Q2

REPORT INFORMATION
  Report Type: Spontaneous
  Country: US (occurrence: US)
  Receive Date: 20140507
  Receipt Date: 20140507
  Transmission Date: 20141212
  Serious: Yes (Other)
  Sender: FDA-Public Use
  Company Number: US-JNJFOC-20140420521

PATIENT
  Age: 16 Year
  Sex: Female

DRUGS (3)
  1. REMICADE [Suspect]
     Indication: CROHN^S DISEASE
     Route: 042
     Dates: end: 2014
  2. REMICADE [Suspect]
     Indication: CROHN^S DISEASE
     Route: 042
     Dates: start: 20140407
  3. DICYCLOMINE [Concomitant]
     Dosage: AS NECESSARY (PRN)
     Route: 065

REACTIONS (13)
  - Ankylosing spondylitis [Unknown]
  - Irritability [Not Recovered/Not Resolved]
  - Impatience [Not Recovered/Not Resolved]
  - Affect lability [Not Recovered/Not Resolved]
  - Menstrual disorder [Unknown]
  - Hostility [Not Recovered/Not Resolved]
  - Mood swings [Unknown]
  - Stress [Unknown]
  - Malaise [Not Recovered/Not Resolved]
  - Gastrointestinal pain [Not Recovered/Not Resolved]
  - Nausea [Unknown]
  - Aggression [Not Recovered/Not Resolved]
  - Therapeutic response decreased [Not Recovered/Not Resolved]
